FAERS Safety Report 16837474 (Version 1)
Quarter: 2019Q3

REPORT INFORMATION
  Report Type: Spontaneous
  Country: US (occurrence: US)
  Receive Date: 20190923
  Receipt Date: 20190923
  Transmission Date: 20191005
  Serious: No
  Sender: FDA-Public Use
  Company Number: US-009507513-1909USA000125

PATIENT
  Age: 11 Year
  Sex: Male

DRUGS (1)
  1. ASMANEX [Suspect]
     Active Substance: MOMETASONE FUROATE
     Dosage: 220 MCG, 1 PUFF A DAY, STRENGTH REPORTED AS: 220 MICROGRAM 60 DOSES
     Dates: start: 20190728

REACTIONS (4)
  - No adverse event [Unknown]
  - Product use issue [Unknown]
  - Product container issue [Unknown]
  - Product use issue [Unknown]

NARRATIVE: CASE EVENT DATE: 20190728
